FAERS Safety Report 8907881 (Version 1)
Quarter: 2012Q4

REPORT INFORMATION
  Report Type: 
  Country: US (occurrence: US)
  Receive Date: 20121113
  Receipt Date: 20121113
  Transmission Date: 20130627
  Serious: No
  Sender: FDA-Public Use
  Company Number: US-AMGEN-USASP2012039542

PATIENT
  Age: 16 Year
  Sex: Female
  Weight: 135 kg

DRUGS (2)
  1. ENBREL [Suspect]
     Indication: PRODUCT USED FOR UNKNOWN INDICATION
     Dosage: 50 mg/ml, qwk for 3 months
     Route: 058
  2. AMPICILLIN [Concomitant]
     Dosage: 500 mg, UNK

REACTIONS (2)
  - Oropharyngeal pain [Unknown]
  - Nasal congestion [Unknown]
